FAERS Safety Report 7218069-8 (Version None)
Quarter: 2011Q1

REPORT INFORMATION
  Report Type: 
  Country: None (occurrence: None)
  Receive Date: 20110110
  Receipt Date: 20110106
  Transmission Date: 20110831
  Serious: Yes (Other)
  Sender: FDA-Public Use
  Company Number: US-AMGEN-QUU432811

PATIENT

DRUGS (2)
  1. NPLATE [Suspect]
     Dates: start: 20090309, end: 20091005
  2. NPLATE [Suspect]
     Indication: IDIOPATHIC THROMBOCYTOPENIC PURPURA
     Dosage: 10 A?G/KG, UNK
     Dates: start: 20090309, end: 20091005

REACTIONS (1)
  - DRUG INEFFECTIVE [None]
